FAERS Safety Report 17237426 (Version 3)
Quarter: 2020Q1

REPORT INFORMATION
  Report Type: Spontaneous
  Country: DK (occurrence: DK)
  Receive Date: 20200106
  Receipt Date: 20200210
  Transmission Date: 20200409
  Serious: Yes (Hospitalization)
  Sender: FDA-Public Use
  Company Number: DK-MYLANLABS-2020M1001134

PATIENT
  Age: 83 Year
  Sex: Female

DRUGS (17)
  1. METOPROLOL. [Concomitant]
     Active Substance: METOPROLOL
     Indication: CARDIAC FAILURE
     Dosage: STYRKE: 50 MG.
     Route: 048
     Dates: start: 201708
  2. LOSARTAN. [Concomitant]
     Active Substance: LOSARTAN
     Dosage: 100 MG, QD
     Route: 048
  3. MACROGOL [Concomitant]
     Active Substance: POLYETHYLENE GLYCOLS
     Indication: CONSTIPATION
     Dosage: STYRKE: UKENDT (1 DF, PRN (AS NECESSARY)
     Route: 048
     Dates: start: 20190624
  4. MAREVAN [Interacting]
     Active Substance: WARFARIN SODIUM
     Dosage: UNK (DOSIS: EFTER SKEMA) STYRKE: 2,5 MG
     Route: 048
     Dates: end: 20190912
  5. FLUCONAZOL ACCORD [Interacting]
     Active Substance: FLUCONAZOLE
     Indication: ORAL FUNGAL INFECTION
     Dosage: STYRKE: 50 MG (50 MG, QD)
     Route: 048
     Dates: start: 20190815, end: 20190828
  6. LOSARTAN. [Concomitant]
     Active Substance: LOSARTAN
     Indication: HYPERTENSION
     Dosage: STYRKE: 50 MG.
     Route: 048
     Dates: start: 201708
  7. FUROSEMIDE. [Concomitant]
     Active Substance: FUROSEMIDE
     Indication: DIURETIC THERAPY
     Dosage: DOSIS: 2 TABLETTER MORGEN, 1 TABLET MIDDAG. STYRKE: 40 MG.
     Route: 048
     Dates: start: 20170927
  8. TRAMADOL. [Concomitant]
     Active Substance: TRAMADOL
     Indication: PAIN
     Dosage: STYRKE: 50 MG, 50 MG, PRN (AS NECESSARY)
     Route: 048
     Dates: start: 201709
  9. POTASSIUM CHLORIDE. [Concomitant]
     Active Substance: POTASSIUM CHLORIDE
     Indication: MINERAL SUPPLEMENTATION
     Dosage: STYRKE: 750 MG (1500 MG, QD)
     Route: 048
     Dates: start: 201705
  10. GANFORT [Concomitant]
     Active Substance: BIMATOPROST\TIMOLOL
     Indication: GLAUCOMA
     Dosage: STYRKE: 0.3 + 5 MG/ML (1 DF, QD)
     Route: 050
     Dates: start: 20120822
  11. METOPROLOL. [Concomitant]
     Active Substance: METOPROLOL
     Dosage: 50 MG, QD
     Route: 048
  12. PANTOPRAZOLE [Concomitant]
     Active Substance: PANTOPRAZOLE
     Indication: GASTRIC ULCER
     Dosage: STYRKE 40 MG (80 MG, QD)
     Route: 048
     Dates: start: 20190815
  13. PANTOPRAZOLE [Concomitant]
     Active Substance: PANTOPRAZOLE
     Dosage: STYRKE 40 MG
     Route: 048
     Dates: start: 20190815
  14. CLARITHROMYCIN. [Suspect]
     Active Substance: CLARITHROMYCIN
     Indication: PNEUMONIA
     Dosage: STYRKE: 500 MG (1000 MG, QD)
     Route: 048
     Dates: start: 20190823, end: 20190825
  15. MAREVAN [Interacting]
     Active Substance: WARFARIN SODIUM
     Indication: ANTICOAGULANT THERAPY
     Dosage: DOSIS: EFTER SKEMA, STYRKE: 2,5 MG
     Route: 048
     Dates: start: 201708, end: 20190912
  16. PARACETAMOL [Concomitant]
     Active Substance: ACETAMINOPHEN
     Indication: PAIN
     Dosage: STYRKE: 500 MG (4000 MG, QD)
     Route: 048
     Dates: start: 20190430
  17. ZINC SULFATE. [Concomitant]
     Active Substance: ZINC SULFATE
     Indication: VITAMIN SUPPLEMENTATION
     Dosage: STYRKE: 22 MG ZN2 + 0.34 MMOL.
     Route: 048
     Dates: start: 20190821

REACTIONS (3)
  - Drug interaction [Recovering/Resolving]
  - Melaena [Recovered/Resolved]
  - International normalised ratio increased [Recovering/Resolving]

NARRATIVE: CASE EVENT DATE: 201909
